FAERS Safety Report 5035608-6 (Version None)
Quarter: 2006Q2

REPORT INFORMATION
  Report Type: 
  Country: None (occurrence: None)
  Receive Date: 20060627
  Receipt Date: 20060524
  Transmission Date: 20061013
  Serious: Yes (Other)
  Sender: FDA-Public Use
  Company Number: US-GLAXOSMITHKLINE-A0606805A

PATIENT
  Age: 78 Year
  Sex: Male
  Weight: 65.9 kg

DRUGS (4)
  1. AVANDIA [Suspect]
     Dosage: 8MG PER DAY
     Route: 048
  2. GLIPIZIDE [Suspect]
     Dosage: 2.5MG PER DAY
     Route: 048
     Dates: start: 20060518, end: 20060522
  3. AVAPRO [Concomitant]
  4. LIPITOR [Concomitant]

REACTIONS (4)
  - DRUG INEFFECTIVE [None]
  - FEELING ABNORMAL [None]
  - HYPOGLYCAEMIA [None]
  - VISION BLURRED [None]
